FAERS Safety Report 5815236-2 (Version None)
Quarter: 2008Q3

REPORT INFORMATION
  Report Type: 
  Country: None (occurrence: None)
  Receive Date: 20080718
  Receipt Date: 20080711
  Transmission Date: 20090109
  Serious: Yes (Hospitalization)
  Sender: FDA-Public Use
  Company Number: US-BOEHRINGER INGELHEIM GMBH, GERMANY-2008-BP-10809RO

PATIENT
  Age: 79 Year
  Sex: Male

DRUGS (12)
  1. FLUCONAZOLE [Suspect]
  2. THIAMINE [Suspect]
  3. FOLATE [Suspect]
  4. INSULIN [Suspect]
  5. LISINOPRIL [Suspect]
  6. SIMVASTATIN [Suspect]
  7. TERAZOSIN HCL [Suspect]
  8. TOLTERODINE TARTRATE [Suspect]
  9. GOSERELIN [Suspect]
  10. MOMETASONE FUROATE [Suspect]
     Route: 055
  11. BICARBONATE [Concomitant]
     Indication: URINE ABNORMALITY
  12. HYDRATION [Concomitant]
     Route: 042

REACTIONS (2)
  - DRUG INTERACTION [None]
  - RHABDOMYOLYSIS [None]
